FAERS Safety Report 5034926-5 (Version None)
Quarter: 2006Q2

REPORT INFORMATION
  Report Type: 
  Country: None (occurrence: None)
  Receive Date: 20060622
  Receipt Date: 20060610
  Transmission Date: 20061013
  Serious: Yes (Hospitalization)
  Sender: FDA-Public Use
  Company Number: S06-GER-02398-01

PATIENT
  Age: 44 Year
  Sex: Female

DRUGS (5)
  1. ESCITALOPRAM OXALATE [Suspect]
     Indication: DEPRESSION
     Dosage: 10 MG QD PO
     Route: 048
     Dates: start: 20050401
  2. ESCITALOPRAM OXALATE [Suspect]
     Indication: SUICIDAL IDEATION
     Dosage: 10 MG QD PO
     Route: 048
     Dates: start: 20050401
  3. CLOZAPINE [Concomitant]
  4. ABILIFY [Concomitant]
  5. NERVENDRAGEES-RATIOPHARM [Concomitant]

REACTIONS (1)
  - RASH GENERALISED [None]
